FAERS Safety Report 10543777 (Version 1)
Quarter: 2014Q4

REPORT INFORMATION
  Report Type: Spontaneous
  Country: US (occurrence: None)
  Receive Date: 20141010
  Receipt Date: 20141010
  Transmission Date: 20150529
  Serious: No
  Sender: FDA-Public Use
  Company Number: 163-POMAL-14080182

PATIENT
  Age: 67 Year
  Sex: Male

DRUGS (1)
  1. POMALYST [Suspect]
     Active Substance: POMALIDOMIDE
     Indication: PLASMA CELL MYELOMA
     Route: 048
     Dates: start: 201405

REACTIONS (5)
  - Fatigue [None]
  - Blood immunoglobulin G increased [None]
  - Pain [None]
  - Asthenia [None]
  - Depression [None]

NARRATIVE: CASE EVENT DATE: 2014
